FAERS Safety Report 11173286 (Version 1)
Quarter: 2015Q2

REPORT INFORMATION
  Report Type: Spontaneous
  Country: FR (occurrence: FR)
  Receive Date: 20150608
  Receipt Date: 20150608
  Transmission Date: 20150821
  Serious: Yes (Other)
  Sender: FDA-Public Use
  Company Number: PHHY2015FR067621

PATIENT
  Age: 12 Year
  Sex: Male

DRUGS (1)
  1. RITALINE LP [Suspect]
     Active Substance: METHYLPHENIDATE HYDROCHLORIDE
     Indication: ABNORMAL BEHAVIOUR
     Dosage: 40 MG, QD
     Route: 048
     Dates: start: 2008, end: 201501

REACTIONS (2)
  - Depression [Recovered/Resolved]
  - Condition aggravated [Recovered/Resolved]

NARRATIVE: CASE EVENT DATE: 201409
